FAERS Safety Report 11344162 (Version 1)
Quarter: 2015Q3

REPORT INFORMATION
  Report Type: Spontaneous
  Country: US (occurrence: None)
  Receive Date: 20150805
  Receipt Date: 20150805
  Transmission Date: 20151125
  Serious: No
  Sender: FDA-Public Use
  Company Number: None

PATIENT
  Age: 56 Year
  Sex: Male

DRUGS (5)
  1. CLINDAMYCIN [Suspect]
     Active Substance: CLINDAMYCIN\CLINDAMYCIN PHOSPHATE
     Indication: INFECTION PROPHYLAXIS
     Dates: start: 20140424, end: 20140424
  2. SEVOFLURANE. [Suspect]
     Active Substance: SEVOFLURANE
     Indication: GENERAL ANAESTHESIA
     Dates: start: 20140424, end: 20140424
  3. ALEVE [Concomitant]
     Active Substance: NAPROXEN SODIUM
  4. MELATONIN [Concomitant]
     Active Substance: MELATONIN
  5. VIAGRA [Concomitant]
     Active Substance: SILDENAFIL CITRATE

REACTIONS (5)
  - Hyperbilirubinaemia [None]
  - Alanine aminotransferase increased [None]
  - Decreased appetite [None]
  - Malaise [None]
  - Chromaturia [None]

NARRATIVE: CASE EVENT DATE: 20140427
